FAERS Safety Report 9026130 (Version 2)
Quarter: 2013Q1

REPORT INFORMATION
  Report Type: Spontaneous
  Country: US (occurrence: None)
  Receive Date: 20130108
  Receipt Date: 20130220
  Transmission Date: 20140127
  Serious: Yes (Hospitalization, Other)
  Sender: FDA-Public Use
  Company Number: 2012P1068341

PATIENT
  Age: 87 Year
  Sex: Female

DRUGS (8)
  1. INFUMORPH [Suspect]
     Indication: BACK PAIN
     Dosage: Q24H
     Route: 037
     Dates: start: 20120601, end: 20121219
  2. INFUMORPH [Suspect]
     Indication: SPINAL PAIN
     Dosage: Q24H
     Route: 037
     Dates: start: 20120601, end: 20121219
  3. INFUMORPH [Suspect]
     Indication: PAIN IN EXTREMITY
     Dosage: Q24H
     Route: 037
     Dates: start: 20120601, end: 20121219
  4. NORVASC [Concomitant]
  5. ATENOLOL [Concomitant]
  6. MIACALCIN [Concomitant]
  7. SYNTHROID [Concomitant]
  8. PROTONIX [Concomitant]

REACTIONS (24)
  - Implant site erosion [None]
  - Catheter site erosion [None]
  - Implant site warmth [None]
  - Implant site infection [None]
  - Hip fracture [None]
  - Skin ulcer [None]
  - Wound dehiscence [None]
  - Cerebrospinal fluid leakage [None]
  - Pain [None]
  - Headache [None]
  - Nausea [None]
  - Wound infection staphylococcal [None]
  - Pulmonary mass [None]
  - Pain in extremity [None]
  - Hypoaesthesia [None]
  - Incision site pain [None]
  - Bone pain [None]
  - Hypoaesthesia [None]
  - Back pain [None]
  - Pneumonia [None]
  - Implant site discharge [None]
  - Catheter site discharge [None]
  - Catheter site erosion [None]
  - Catheter site erythema [None]
